FAERS Safety Report 15655765 (Version 1)
Quarter: 2018Q4

REPORT INFORMATION
  Report Type: Other
  Country: ES (occurrence: ES)
  Receive Date: 20181126
  Receipt Date: 20181126
  Transmission Date: 20190205
  Serious: Yes (Other)
  Sender: FDA-Public Use
  Company Number: ES-APOTEX-2018AP025125

PATIENT
  Age: 41 Year
  Sex: Male

DRUGS (5)
  1. IBUPROFEN. [Suspect]
     Active Substance: IBUPROFEN
     Indication: BACK PAIN
     Dosage: 600MG CADA 8 HORAS EVERY 8 HOURS
     Route: 048
     Dates: start: 20170828, end: 20170915
  2. METHYLSULFONYLMETHANE [Concomitant]
     Active Substance: DIMETHYL SULFONE
     Indication: PRODUCT USED FOR UNKNOWN INDICATION
     Dosage: 1-1-1
     Route: 048
     Dates: start: 20170601, end: 20170828
  3. YURELAX [Suspect]
     Active Substance: CYCLOBENZAPRINE HYDROCHLORIDE
     Indication: BACK PAIN
     Dosage: 1-0-0
     Route: 048
     Dates: start: 20170828, end: 20170915
  4. CURCUMA [Concomitant]
     Indication: PRODUCT USED FOR UNKNOWN INDICATION
     Dosage: UNK
     Route: 065
     Dates: start: 20170601, end: 20170828
  5. PARACETAMOL [Suspect]
     Active Substance: ACETAMINOPHEN
     Indication: BACK PAIN
     Dosage: 1GR/8H EVERY 8 HOURS
     Route: 048
     Dates: start: 20170828, end: 20170915

REACTIONS (1)
  - Hepatitis acute [Recovered/Resolved]

NARRATIVE: CASE EVENT DATE: 20170915
